FAERS Safety Report 4440035-6 (Version None)
Quarter: 2004Q3

REPORT INFORMATION
  Report Type: 
  Country: None (occurrence: None)
  Receive Date: 20040831
  Receipt Date: 20040726
  Transmission Date: 20050211
  Serious: No
  Sender: FDA-Public Use
  Company Number: 702179

PATIENT
  Age: 52 Year
  Sex: Female
  Weight: 80.7403 kg

DRUGS (2)
  1. AMEVIVE [Suspect]
     Indication: PSORIASIS
     Dosage: 15 MG QW IM
     Route: 030
     Dates: start: 20040617
  2. CIPRO [Concomitant]

REACTIONS (4)
  - ERYTHEMA [None]
  - LOCALISED EXFOLIATION [None]
  - RASH [None]
  - RASH PUSTULAR [None]
